FAERS Safety Report 20112655 (Version 2)
Quarter: 2022Q1

REPORT INFORMATION
  Report Type: Spontaneous
  Country: GB (occurrence: GB)
  Receive Date: 20211125
  Receipt Date: 20220117
  Transmission Date: 20220423
  Serious: Yes (Hospitalization, Other)
  Sender: FDA-Public Use
  Company Number: GB-NOVARTISPH-NVSC2021GB261458

PATIENT
  Age: 59 Year
  Sex: Female
  Weight: 70 kg

DRUGS (3)
  1. ESTRADIOL [Suspect]
     Active Substance: ESTRADIOL
     Indication: Product used for unknown indication
     Dosage: 3 DF, TID (ONE PATCH ON THE RIGHT BUM CHEEK AND 2 PATCHES ON LEFT BUM CHEEK)
     Route: 062
     Dates: start: 2014
  2. .ALPHA.-TOCOPHEROL ACETATE [Suspect]
     Active Substance: .ALPHA.-TOCOPHEROL ACETATE
     Indication: Product used for unknown indication
     Dosage: UNK
     Route: 065
  3. LEVOTHYROXINE [Concomitant]
     Active Substance: LEVOTHYROXINE
     Indication: Product used for unknown indication
     Dosage: UNK
     Route: 065

REACTIONS (18)
  - Hypertension [Unknown]
  - Pneumonia [Unknown]
  - Cardiac failure [Unknown]
  - Hyperthyroidism [Unknown]
  - Suicide attempt [Recovered/Resolved]
  - Drug dependence [Unknown]
  - Anxiety [Recovered/Resolved]
  - Mood altered [Recovered/Resolved]
  - Product availability issue [Recovered/Resolved]
  - Impaired healing [Unknown]
  - Feeling abnormal [Unknown]
  - Stress [Unknown]
  - Insomnia [Unknown]
  - Stress cardiomyopathy [Unknown]
  - Dry skin [Unknown]
  - Palpitations [Unknown]
  - Alopecia [Unknown]
  - Inappropriate schedule of product administration [Unknown]

NARRATIVE: CASE EVENT DATE: 20201201
